FAERS Safety Report 9820483 (Version 1)
Quarter: 2014Q1

REPORT INFORMATION
  Report Type: Spontaneous
  Country: JP (occurrence: None)
  Receive Date: 20140114
  Receipt Date: 20140114
  Transmission Date: 20141002
  Serious: Yes (Other)
  Sender: FDA-Public Use
  Company Number: 2014P1000035

PATIENT
  Age: 10 Year
  Sex: Female

DRUGS (7)
  1. DEXAMETHASONE [Suspect]
     Indication: T-CELL TYPE ACUTE LEUKAEMIA
     Route: 048
  2. VINCRISTINE [Suspect]
     Route: 042
  3. DAUNORUBICIN [Suspect]
     Route: 042
  4. L-ASPARAGINASE [Suspect]
     Route: 030
  5. CYTARABINE [Suspect]
     Route: 037
  6. METHOTREXATE [Suspect]
  7. PREDNISOLONE [Suspect]

REACTIONS (2)
  - Posterior reversible encephalopathy syndrome [None]
  - Blood pressure increased [None]
